FAERS Safety Report 9029154 (Version 1)
Quarter: 2013Q1

REPORT INFORMATION
  Report Type: Report from Study
  Country: FR (occurrence: FR)
  Receive Date: 20130125
  Receipt Date: 20130125
  Transmission Date: 20140127
  Serious: Yes (Hospitalization)
  Sender: FDA-Public Use
  Company Number: FR-009507513-1301FRA009916

PATIENT
  Age: 62 Year
  Sex: Male

DRUGS (7)
  1. BOCEPREVIR [Suspect]
     Indication: HEPATITIS C
     Dosage: 800 MG, TID
     Route: 048
     Dates: start: 20121224, end: 20130121
  2. COPEGUS [Suspect]
     Indication: HEPATITIS C
     Dosage: 800 MG, QD
     Route: 048
     Dates: start: 20130114, end: 20130121
  3. PEGASYS [Suspect]
     Indication: HEPATITIS C
     Dosage: 135 MICROGRAM, QW
     Route: 058
     Dates: start: 20130107, end: 20130121
  4. KALEORID [Concomitant]
     Indication: BLOOD POTASSIUM DECREASED
     Dosage: 1000 MG, TID
     Dates: start: 20121103
  5. XYZALL [Concomitant]
     Indication: PRURITUS
     Dosage: 1 DF, QD
     Dates: start: 20121103
  6. REVOLADE [Concomitant]
     Indication: THROMBOCYTOPENIA
     Dosage: 50 MG, QD
     Dates: start: 20121228
  7. NEUPOGEN [Concomitant]
     Indication: NEUTROPENIA
     Dosage: 30 MILLION IU, QW
     Dates: start: 20130114, end: 20130121

REACTIONS (2)
  - Ascites [Recovered/Resolved]
  - Abdominal pain [Recovered/Resolved]
